FAERS Safety Report 11170612 (Version 2)
Quarter: 2015Q2

REPORT INFORMATION
  Report Type: Report from Study
  Country: ES (occurrence: ES)
  Receive Date: 20150608
  Receipt Date: 20150610
  Transmission Date: 20150821
  Serious: Yes (Hospitalization)
  Sender: FDA-Public Use
  Company Number: ES-JNJFOC-20150520575

PATIENT
  Age: 75 Year
  Sex: Male
  Weight: 83.7 kg

DRUGS (8)
  1. HIBOR [Concomitant]
     Active Substance: BEMIPARIN SODIUM
     Route: 058
     Dates: start: 20150601
  2. DUROGESIC [Concomitant]
     Active Substance: FENTANYL
     Route: 062
     Dates: start: 20150601
  3. FLUMIL FORTE [Concomitant]
     Active Substance: ACETYLCYSTEINE
     Route: 065
     Dates: start: 20150601
  4. DOCETAXEL. [Suspect]
     Active Substance: DOCETAXEL
     Indication: PROSTATE CANCER
     Route: 042
     Dates: start: 20150203
  5. VALIUM [Concomitant]
     Active Substance: DIAZEPAM
     Dosage: IN NIGHT
     Route: 042
     Dates: start: 20150601
  6. ABIRATERONE [Suspect]
     Active Substance: ABIRATERONE
     Indication: PROSTATE CANCER
     Dosage: ON CYCLE 6 DAY 7.
     Route: 048
     Dates: start: 20141103, end: 20150525
  7. FERRUM IV. [Concomitant]
     Route: 042
     Dates: start: 20150601
  8. PREDNISONE. [Suspect]
     Active Substance: PREDNISONE
     Indication: PROSTATE CANCER
     Route: 048
     Dates: start: 20141103

REACTIONS (1)
  - Febrile neutropenia [Not Recovered/Not Resolved]

NARRATIVE: CASE EVENT DATE: 20150525
